FAERS Safety Report 7933682-8 (Version None)
Quarter: 2011Q4

REPORT INFORMATION
  Report Type: 
  Country: None (occurrence: None)
  Receive Date: 20111122
  Receipt Date: 20111112
  Transmission Date: 20120403
  Serious: Yes (Hospitalization, Other)
  Sender: FDA-Public Use
  Company Number: PHHY2011CA100068

PATIENT
  Sex: Female

DRUGS (6)
  1. VITAMIN D [Concomitant]
     Dosage: 3000 U, ONCE/SINGLE
     Route: 048
  2. ZOLEDRONOC ACID [Suspect]
     Indication: OSTEOPOROSIS
     Dosage: 5 MG, UNK
     Route: 042
     Dates: start: 20091001
  3. HYDROCORTISONE [Concomitant]
     Dosage: 15 MG, ONCE/SINGLE
     Route: 048
  4. SYNTHROID [Concomitant]
     Dosage: 125 MG, ONCE/SINGLE
     Route: 048
  5. CALCIUM CARBONATE [Concomitant]
     Dosage: UNK UKN, ONCE/SINGLE
  6. FLORINEF [Concomitant]
     Dosage: 0.5 MG, ONCE/SINGLE
     Route: 048

REACTIONS (4)
  - WRIST FRACTURE [None]
  - BRONCHITIS [None]
  - PAIN [None]
  - FALL [None]
